FAERS Safety Report 5213517-7 (Version None)
Quarter: 2007Q1

REPORT INFORMATION
  Report Type: 
  Country: None (occurrence: None)
  Receive Date: 20070119
  Receipt Date: 20070109
  Transmission Date: 20070707
  Serious: Yes (Other)
  Sender: FDA-Public Use
  Company Number: PHBS2006ES09033

PATIENT
  Age: 39 Year
  Sex: Female

DRUGS (2)
  1. ELIDEL [Suspect]
     Indication: DERMATITIS ATOPIC
     Route: 061
     Dates: start: 20040101
  2. ELIDEL [Suspect]
     Route: 061
     Dates: start: 20050401

REACTIONS (4)
  - MALIGNANT MELANOMA IN SITU [None]
  - MELANOCYTIC NAEVUS [None]
  - SURGERY [None]
  - WHITE BLOOD CELL COUNT DECREASED [None]
